FAERS Safety Report 5628214-3 (Version None)
Quarter: 2008Q1

REPORT INFORMATION
  Report Type: 
  Country: None (occurrence: None)
  Receive Date: 20080215
  Receipt Date: 20080212
  Transmission Date: 20080703
  Serious: Yes (Death, Life-Threatening)
  Sender: FDA-Public Use
  Company Number: GB-ABBOTT-08P-167-0437893-00

PATIENT
  Age: 71 Year
  Sex: Male

DRUGS (5)
  1. CLARITHROMYCIN [Suspect]
     Indication: LOWER RESPIRATORY TRACT INFECTION
     Dates: start: 20080109, end: 20080115
  2. ASPIRIN [Concomitant]
     Indication: TRANSIENT ISCHAEMIC ATTACK
     Dates: end: 20080102
  3. OMEPRAZOLE [Concomitant]
     Indication: ULCER
     Dates: end: 20080102
  4. SIMVASTATIN [Concomitant]
     Indication: TRANSIENT ISCHAEMIC ATTACK
     Dates: end: 20080102
  5. BENDROFLUMETHIAZIDE [Concomitant]
     Indication: HYPERTENSION
     Dates: end: 20080102

REACTIONS (1)
  - TOXIC EPIDERMAL NECROLYSIS [None]
